FAERS Safety Report 12583760 (Version 2)
Quarter: 2016Q3

REPORT INFORMATION
  Report Type: Spontaneous
  Country: PL (occurrence: PL)
  Receive Date: 20160722
  Receipt Date: 20160810
  Transmission Date: 20161109
  Serious: Yes (Hospitalization, Other)
  Sender: FDA-Public Use
  Company Number: PL-KADMON PHARMACEUTICALS, LLC-KAD201607-002630

PATIENT
  Age: 61 Year
  Sex: Female
  Weight: 75 kg

DRUGS (9)
  1. HARVONI [Suspect]
     Active Substance: LEDIPASVIR\SOFOSBUVIR
     Indication: HEPATITIS C
     Route: 048
     Dates: start: 20160502
  2. PROPRANOLOL [Concomitant]
     Active Substance: PROPRANOLOL\PROPRANOLOL HYDROCHLORIDE
  3. RIBAVIRIN. [Suspect]
     Active Substance: RIBAVIRIN
     Indication: HEPATITIS C
     Route: 048
     Dates: start: 20160502
  4. DIUVER [Concomitant]
     Active Substance: TORSEMIDE
  5. SPIRONOLACTONE. [Concomitant]
     Active Substance: SPIRONOLACTONE
  6. AMARYL [Concomitant]
     Active Substance: GLIMEPIRIDE
  7. CONTROLOC [Concomitant]
     Active Substance: PANTOPRAZOLE SODIUM
  8. FUROSEMIDE. [Concomitant]
     Active Substance: FUROSEMIDE
  9. CLARZOLE [Concomitant]
     Active Substance: LETROZOLE
     Indication: BREAST CANCER

REACTIONS (3)
  - Anaemia [Not Recovered/Not Resolved]
  - Intra-abdominal haemorrhage [Not Recovered/Not Resolved]
  - Malignant neoplasm progression [Not Recovered/Not Resolved]

NARRATIVE: CASE EVENT DATE: 20160528
